FAERS Safety Report 9277220 (Version 4)
Quarter: 2014Q2

REPORT INFORMATION
  Report Type: Report from Study
  Country: BR (occurrence: BR)
  Receive Date: 20130508
  Receipt Date: 20140514
  Transmission Date: 20141212
  Serious: Yes (Hospitalization, Other)
  Sender: FDA-Public Use
  Company Number: BR-ROCHE-756429

PATIENT
  Age: 66 Year
  Sex: Female
  Weight: 55 kg

DRUGS (16)
  1. MABTHERA [Suspect]
     Indication: SYSTEMIC LUPUS ERYTHEMATOSUS
     Route: 042
  2. MABTHERA [Suspect]
     Indication: ARTHRITIS
     Route: 042
  3. MABTHERA [Suspect]
     Indication: SJOGREN^S SYNDROME
     Route: 042
  4. MABTHERA [Suspect]
     Route: 042
     Dates: start: 201104, end: 20110427
  5. MABTHERA [Suspect]
     Dosage: LAST DOSE WAS ON 18/JUN/2013
     Route: 042
  6. TYLENOL [Concomitant]
     Indication: PREMEDICATION
  7. ENALAPRIL MALEATE [Concomitant]
     Indication: HYPERTENSION
     Route: 065
  8. PANTOPRAZOLE [Concomitant]
     Route: 065
  9. PURAN T4 [Concomitant]
     Indication: HYPOTHYROIDISM
     Route: 065
  10. SINVASTACOR [Concomitant]
     Route: 065
  11. FOLIC ACID [Concomitant]
  12. ENDRONAX [Concomitant]
     Route: 065
  13. REMICADE [Concomitant]
     Route: 065
  14. METHOTREXATE [Concomitant]
     Indication: RHEUMATOID ARTHRITIS
     Route: 065
  15. ATORVASTATIN [Concomitant]
  16. PREDNISONE [Concomitant]

REACTIONS (16)
  - Fracture [Recovered/Resolved]
  - Joint dislocation [Recovered/Resolved]
  - Humerus fracture [Recovering/Resolving]
  - Tendon disorder [Recovering/Resolving]
  - Headache [Unknown]
  - Joint swelling [Unknown]
  - Lymphocyte count increased [Recovered/Resolved]
  - Gastroenteritis [Recovered/Resolved]
  - Salivary gland enlargement [Recovered/Resolved]
  - Tremor [Recovered/Resolved]
  - Fall [Recovered/Resolved]
  - Systemic lupus erythematosus [Unknown]
  - White blood cell count decreased [Unknown]
  - Urinary tract infection [Recovered/Resolved]
  - Cough [Not Recovered/Not Resolved]
  - Conjunctivitis [Not Recovered/Not Resolved]
